FAERS Safety Report 4880746-1 (Version None)
Quarter: 2006Q1

REPORT INFORMATION
  Report Type: 
  Country: None (occurrence: None)
  Receive Date: 20060111
  Receipt Date: 20051014
  Transmission Date: 20060701
  Serious: No
  Sender: FDA-Public Use
  Company Number: 2005S1000227

PATIENT
  Weight: 67.5 kg

DRUGS (2)
  1. CUBICIN [Suspect]
     Indication: OSTEOMYELITIS
     Dosage: 250 MG;Q24H;IV
     Route: 042
     Dates: start: 20050101
  2. VANCOMYCIN [Concomitant]

REACTIONS (1)
  - DIARRHOEA [None]
